FAERS Safety Report 8398345-6 (Version None)
Quarter: 2012Q2

REPORT INFORMATION
  Report Type: 
  Country: None (occurrence: None)
  Receive Date: 20120524
  Receipt Date: 20120518
  Transmission Date: 20120825
  Serious: Yes (Hospitalization)
  Sender: FDA-Public Use
  Company Number: IMP_05906_2012

PATIENT
  Age: 83 Year
  Sex: Male

DRUGS (9)
  1. PRAVASTATIN [Concomitant]
  2. ISOSORBIDE MONONITRATE [Concomitant]
  3. BISOPROLOL FUMARATE [Concomitant]
  4. POTASSIUM CHLORIDE [Concomitant]
  5. FUROSEMIDE [Concomitant]
  6. DIGOXIN [Suspect]
     Indication: CARDIOVASCULAR DISORDER
     Dosage: 0.125 MG QS ORAL
     Route: 048
  7. CLARITHROMYCIN [Suspect]
     Indication: PNEUMONIA
     Dosage: 500 MG BID ORAL
     Route: 048
  8. SPIRONOLACTONE [Concomitant]
  9. CAPTOPRIL [Concomitant]

REACTIONS (14)
  - MALAISE [None]
  - DYSPNOEA EXERTIONAL [None]
  - DECREASED APPETITE [None]
  - DIZZINESS [None]
  - TOXICITY TO VARIOUS AGENTS [None]
  - BLOOD POTASSIUM INCREASED [None]
  - RENAL IMPAIRMENT [None]
  - COUGH [None]
  - WHITE BLOOD CELL COUNT INCREASED [None]
  - BLOOD CREATININE INCREASED [None]
  - DRUG INTERACTION [None]
  - FATIGUE [None]
  - VENTRICULAR EXTRASYSTOLES [None]
  - NAUSEA [None]
